FAERS Safety Report 8805373 (Version 1)
Quarter: 2012Q4

REPORT INFORMATION
  Report Type: 
  Country: US (occurrence: US)
  Receive Date: 20120924
  Receipt Date: 20120924
  Transmission Date: 20130627
  Serious: No
  Sender: FDA-Public Use
  Company Number: US-PFIZER INC-2012232828

PATIENT
  Sex: Female

DRUGS (4)
  1. NEURONTIN [Suspect]
     Indication: FIBROMYALGIA
     Dosage: 100 mg, UNK
  2. NEURONTIN [Suspect]
     Dosage: 300 mg, UNK
  3. NEURONTIN [Suspect]
     Dosage: 100 mg, 3x/day
  4. NEURONTIN [Suspect]
     Dosage: UNK
     Dates: start: 20120914, end: 20120919

REACTIONS (6)
  - Wrong technique in drug usage process [Unknown]
  - Pain [Unknown]
  - Back pain [Unknown]
  - Muscle spasms [Unknown]
  - Musculoskeletal stiffness [Unknown]
  - Limb discomfort [Unknown]
